FAERS Safety Report 19823756 (Version 13)
Quarter: 2025Q3

REPORT INFORMATION
  Report Type: Spontaneous
  Country: US (occurrence: US)
  Receive Date: 20210913
  Receipt Date: 20250725
  Transmission Date: 20251020
  Serious: Yes (Other)
  Sender: AMGEN
  Company Number: US-AMGEN-USASP2021140198

PATIENT
  Age: 70 Year
  Sex: Male

DRUGS (15)
  1. OTEZLA [Suspect]
     Active Substance: APREMILAST
     Indication: Psoriasis
     Dosage: 30 MILLIGRAM, BID
     Route: 048
     Dates: start: 20210604
  2. ACITRETIN [Concomitant]
     Active Substance: ACITRETIN
  3. ACYCLOVIR [Concomitant]
     Active Substance: ACYCLOVIR
  4. LORAZEPAM [Concomitant]
     Active Substance: LORAZEPAM
  5. MELOXICAM [Concomitant]
     Active Substance: MELOXICAM
  6. METFORMIN [Concomitant]
     Active Substance: METFORMIN HYDROCHLORIDE
  7. CAPTOPRIL [Concomitant]
     Active Substance: CAPTOPRIL
  8. SORIATANE [Concomitant]
     Active Substance: ACITRETIN
  9. TRAZODONE [Concomitant]
     Active Substance: TRAZODONE HYDROCHLORIDE
  10. VITAMIN C [Concomitant]
     Active Substance: ASCORBIC ACID
  11. E 400 [Concomitant]
  12. Betameth dipropionate [Concomitant]
  13. HYDROCORTISONE [Concomitant]
     Active Substance: HYDROCORTISONE
  14. Soothe [Concomitant]
  15. NITROGLYCERIN [Concomitant]
     Active Substance: NITROGLYCERIN
     Route: 058

REACTIONS (8)
  - Psoriatic arthropathy [Not Recovered/Not Resolved]
  - Therapy non-responder [Unknown]
  - Psoriasis [Not Recovered/Not Resolved]
  - Product dose omission issue [Not Recovered/Not Resolved]
  - Skin ulcer [Not Recovered/Not Resolved]
  - Infection [Not Recovered/Not Resolved]
  - Fatigue [Not Recovered/Not Resolved]
  - Localised infection [Not Recovered/Not Resolved]

NARRATIVE: CASE EVENT DATE: 20210101
